FAERS Safety Report 6277984-2 (Version None)
Quarter: 2009Q3

REPORT INFORMATION
  Report Type: 
  Country: None (occurrence: None)
  Receive Date: 20090722
  Receipt Date: 20090721
  Transmission Date: 20100115
  Serious: Yes (Other)
  Sender: FDA-Public Use
  Company Number: US-BRISTOL-MYERS SQUIBB COMPANY-14538540

PATIENT
  Age: 83 Year
  Sex: Female
  Weight: 100 kg

DRUGS (4)
  1. COUMADIN [Suspect]
     Indication: DEEP VEIN THROMBOSIS
     Dosage: 2MG ON 1-2MAR, 3MG,3MAR AND CONTINUED 3MG UPON DISCHARGE 5MAR.CONTINUED ON 10MAR09-20MAR09;1WK4DAYS
     Route: 048
     Dates: start: 20090301, end: 20090320
  2. PLAVIX [Suspect]
     Indication: DEEP VEIN THROMBOSIS
     Dosage: THERAPYDATES:25FEB09,05MAR09;WAS TAKING ON 09MAR09
     Route: 048
     Dates: start: 20090225
  3. ASPIRIN [Suspect]
     Indication: DEEP VEIN THROMBOSIS
     Route: 048
     Dates: start: 20090224
  4. LOVENOX [Concomitant]

REACTIONS (3)
  - DIZZINESS [None]
  - NAUSEA [None]
  - STEVENS-JOHNSON SYNDROME [None]
